FAERS Safety Report 9728303 (Version 1)
Quarter: 2013Q4

REPORT INFORMATION
  Report Type: Spontaneous
  Country: BR (occurrence: BR)
  Receive Date: 20131204
  Receipt Date: 20131204
  Transmission Date: 20140711
  Serious: Yes (Other)
  Sender: FDA-Public Use
  Company Number: BR-ASTRAZENECA-2013SE86931

PATIENT
  Age: 51 Year
  Sex: Female
  Weight: 61 kg

DRUGS (4)
  1. VIMOVO [Suspect]
     Indication: INTERVERTEBRAL DISC PROTRUSION
     Dosage: 500 MG/20 MG, AT NIGHT
     Route: 048
     Dates: start: 20131119, end: 20131119
  2. VIMOVO [Suspect]
     Indication: INTERVERTEBRAL DISC PROTRUSION
     Dosage: 500 MG/20 MG, AT NIGHT
     Route: 048
     Dates: start: 20131122
  3. DIOVAN [Concomitant]
     Indication: HYPERTENSION
     Route: 048
     Dates: start: 201308
  4. DIOVAN [Concomitant]
     Indication: HYPERTENSION
     Route: 048

REACTIONS (4)
  - Blood pressure systolic increased [Recovered/Resolved]
  - Off label use [Recovered/Resolved]
  - Off label use [Recovered/Resolved]
  - Drug dose omission [Recovered/Resolved]
